FAERS Safety Report 7282572-5 (Version None)
Quarter: 2011Q1

REPORT INFORMATION
  Report Type: 
  Country: None (occurrence: None)
  Receive Date: 20110209
  Receipt Date: 20110202
  Transmission Date: 20110831
  Serious: No
  Sender: FDA-Public Use
  Company Number: US-PFIZER INC-2011024394

PATIENT
  Sex: Male
  Weight: 81.633 kg

DRUGS (3)
  1. TOPROL-XL [Concomitant]
     Dosage: UNK
  2. PLAVIX [Concomitant]
     Dosage: 25 MG, UNK
  3. LIPITOR [Suspect]
     Indication: ARTERIAL OCCLUSIVE DISEASE
     Dosage: 80 MG, 1X/DAY
     Route: 048

REACTIONS (2)
  - HEPATIC FUNCTION ABNORMAL [None]
  - INSOMNIA [None]
